FAERS Safety Report 20688763 (Version 1)
Quarter: 2022Q2

REPORT INFORMATION
  Report Type: Spontaneous
  Country: RO (occurrence: RO)
  Receive Date: 20220408
  Receipt Date: 20220408
  Transmission Date: 20220721
  Serious: Yes (Other)
  Sender: FDA-Public Use
  Company Number: RO-NKFPHARMA-2022MPLIT00040

PATIENT
  Age: 76 Year
  Sex: Male

DRUGS (2)
  1. ENOXAPARIN SODIUM [Suspect]
     Active Substance: ENOXAPARIN SODIUM
     Indication: Deep vein thrombosis
     Route: 065
  2. ELIQUIS [Concomitant]
     Active Substance: APIXABAN

REACTIONS (3)
  - Rhabdomyolysis [Unknown]
  - Renal impairment [Recovering/Resolving]
  - Haematoma [Recovered/Resolved]
